FAERS Safety Report 16377475 (Version 1)
Quarter: 2019Q2

REPORT INFORMATION
  Report Type: Spontaneous
  Country: US (occurrence: US)
  Receive Date: 20190531
  Receipt Date: 20190531
  Transmission Date: 20190711
  Serious: No
  Sender: FDA-Public Use
  Company Number: US-PFIZER INC-2019221052

PATIENT
  Age: 61 Year
  Sex: Female
  Weight: 145.1 kg

DRUGS (1)
  1. FLECTOR [Suspect]
     Active Substance: DICLOFENAC EPOLAMINE
     Indication: PAIN
     Dosage: UNK, (1.3% APPLY EVERY 12 HOURS)
     Route: 008
     Dates: start: 20190522

REACTIONS (2)
  - Drug ineffective [Unknown]
  - Product complaint [Unknown]
